FAERS Safety Report 6020723-0 (Version None)
Quarter: 2008Q4

REPORT INFORMATION
  Report Type: 
  Country: None (occurrence: None)
  Receive Date: 20081222
  Receipt Date: 20081216
  Transmission Date: 20090506
  Serious: Yes (Other)
  Sender: FDA-Public Use
  Company Number: CHNY2008DE04127

PATIENT
  Sex: Male

DRUGS (1)
  1. LAMISIL CREAM (TERBINAFINE HYDROCHLORIDE) CREAM [Suspect]
     Dosage: TOPICAL
     Route: 061

REACTIONS (6)
  - APPLICATION SITE VESICLES [None]
  - BLOOD BLISTER [None]
  - HYPERSENSITIVITY [None]
  - INFLAMMATION [None]
  - OEDEMA PERIPHERAL [None]
  - PAIN [None]
